FAERS Safety Report 5208972-2 (Version None)
Quarter: 2007Q1

REPORT INFORMATION
  Report Type: 
  Country: None (occurrence: None)
  Receive Date: 20070116
  Receipt Date: 20070112
  Transmission Date: 20070707
  Serious: Yes (Other)
  Sender: FDA-Public Use
  Company Number: US-GLAXOSMITHKLINE-A0634497A

PATIENT
  Sex: Female

DRUGS (4)
  1. AVANDIA [Suspect]
     Route: 048
     Dates: start: 19990101
  2. INSULIN [Concomitant]
  3. STATINS [Concomitant]
  4. ASPIRIN [Concomitant]

REACTIONS (5)
  - BLOOD GLUCOSE INCREASED [None]
  - HUNGER [None]
  - PERIORBITAL OEDEMA [None]
  - RETINAL HAEMORRHAGE [None]
  - WEIGHT INCREASED [None]
